FAERS Safety Report 7653964-7 (Version None)
Quarter: 2011Q3

REPORT INFORMATION
  Report Type: 
  Country: None (occurrence: None)
  Receive Date: 20110803
  Receipt Date: 20110728
  Transmission Date: 20111222
  Serious: Yes (Hospitalization, Other)
  Sender: FDA-Public Use
  Company Number: US-PFIZER INC-2011111764

PATIENT
  Sex: Female

DRUGS (1)
  1. CHANTIX [Suspect]
     Indication: SMOKING CESSATION THERAPY
     Dosage: 10 MG, UNK
     Dates: start: 20090504, end: 20090528

REACTIONS (8)
  - PSYCHOTIC DISORDER [None]
  - BIPOLAR DISORDER [None]
  - ANXIETY [None]
  - DEPRESSION [None]
  - PERSONALITY DISORDER [None]
  - MENTAL DISORDER [None]
  - SUICIDE ATTEMPT [None]
  - SUICIDAL IDEATION [None]
